FAERS Safety Report 6693566-2 (Version None)
Quarter: 2010Q2

REPORT INFORMATION
  Report Type: 
  Country: None (occurrence: None)
  Receive Date: 20100423
  Receipt Date: 20100413
  Transmission Date: 20101027
  Serious: No
  Sender: FDA-Public Use
  Company Number: US-BIOGENIDEC-2010BI012289

PATIENT
  Age: 46 Year
  Sex: Male

DRUGS (4)
  1. AVONEX [Suspect]
     Indication: MULTIPLE SCLEROSIS
     Route: 030
     Dates: start: 20090109, end: 20090401
  2. AVONEX [Suspect]
     Route: 030
     Dates: start: 20090401, end: 20090701
  3. AVONEX [Suspect]
     Route: 030
     Dates: start: 20090701, end: 20091001
  4. AVONEX [Suspect]
     Route: 030
     Dates: start: 20091001

REACTIONS (3)
  - CHILLS [None]
  - HEADACHE [None]
  - URINARY INCONTINENCE [None]
